FAERS Safety Report 5943386-9 (Version None)
Quarter: 2008Q4

REPORT INFORMATION
  Report Type: 
  Country: None (occurrence: None)
  Receive Date: 20081105
  Receipt Date: 20081105
  Transmission Date: 20090506
  Serious: Yes (Hospitalization)
  Sender: FDA-Public Use
  Company Number: None

PATIENT
  Sex: Male
  Weight: 102.5 kg

DRUGS (1)
  1. CISPLATIN [Suspect]
     Dosage: 150 MG

REACTIONS (1)
  - PNEUMONIA [None]
